FAERS Safety Report 7435095-4 (Version None)
Quarter: 2011Q2

REPORT INFORMATION
  Report Type: 
  Country: None (occurrence: None)
  Receive Date: 20110425
  Receipt Date: 20110412
  Transmission Date: 20111010
  Serious: Yes (Other)
  Sender: FDA-Public Use
  Company Number: PHHY2010NL25831

PATIENT
  Sex: Female

DRUGS (3)
  1. ZOMETA [Suspect]
     Indication: METASTATIC NEOPLASM
     Dosage: 4 MG /5 ML IN 20 MINUTES
     Route: 042
     Dates: start: 20090421
  2. ZOMETA [Suspect]
     Dosage: 4 MG /5 ML IN 20 MINUTES
     Route: 042
     Dates: start: 20100421, end: 20101018
  3. ZOMETA [Suspect]
     Dosage: 4 MG /5 ML IN 20 MINUTES
     Route: 042
     Dates: start: 20091020

REACTIONS (2)
  - NEOPLASM [None]
  - NECK PAIN [None]
